FAERS Safety Report 6704639-X (Version None)
Quarter: 2010Q2

REPORT INFORMATION
  Report Type: 
  Country: None (occurrence: None)
  Receive Date: 20100430
  Receipt Date: 20100421
  Transmission Date: 20101027
  Serious: Yes (Life-Threatening, Other)
  Sender: FDA-Public Use
  Company Number: JP-TYCO HEALTHCARE/MALLINCKRODT-T201001120

PATIENT
  Age: 18 Year
  Sex: Female

DRUGS (8)
  1. MORPHINE [Suspect]
     Indication: GENERAL ANAESTHESIA
     Dosage: UNK
  2. MORPHINE [Suspect]
     Indication: PAIN MANAGEMENT
  3. FENTANYL [Suspect]
     Indication: GENERAL ANAESTHESIA
     Dosage: UNK
  4. FENTANYL [Suspect]
     Indication: PAIN MANAGEMENT
  5. DROPERIDOL [Suspect]
     Indication: GENERAL ANAESTHESIA
     Dosage: UNK
  6. DROPERIDOL [Suspect]
     Indication: PAIN MANAGEMENT
  7. HALOPERIDOL [Suspect]
     Indication: GENERAL ANAESTHESIA
     Dosage: UNK
  8. HALOPERIDOL [Suspect]
     Indication: PAIN MANAGEMENT

REACTIONS (2)
  - CATATONIA [None]
  - NEUROLEPTIC MALIGNANT SYNDROME [None]
